FAERS Safety Report 9553549 (Version 1)
Quarter: 2013Q3

REPORT INFORMATION
  Report Type: Spontaneous
  Country: US (occurrence: None)
  Receive Date: 20130719
  Receipt Date: 20130719
  Transmission Date: 20140515
  Serious: Yes (Hospitalization)
  Sender: FDA-Public Use
  Company Number: POI0573201300003

PATIENT
  Sex: Male

DRUGS (1)
  1. VENLAFAXINE EXTENDED-RELEASE TABLETS [Suspect]
     Indication: DEPRESSION
     Route: 048

REACTIONS (1)
  - Depression [None]
